FAERS Safety Report 10864839 (Version 1)
Quarter: 2015Q1

REPORT INFORMATION
  Report Type: Report from Study
  Country: NL (occurrence: NL)
  Receive Date: 20150224
  Receipt Date: 20150224
  Transmission Date: 20150721
  Serious: Yes (Other)
  Sender: FDA-Public Use
  Company Number: NL-GLAXOSMITHKLINE-NL2015GSK024319

PATIENT

DRUGS (2)
  1. HEPARIN [Concomitant]
     Active Substance: HEPARIN SODIUM
     Indication: PRODUCT USED FOR UNKNOWN INDICATION
     Route: 065
  2. MELPHALAN [Suspect]
     Active Substance: MELPHALAN
     Indication: FIBROMATOSIS
     Dosage: UNK, Z
     Route: 065

REACTIONS (3)
  - Epidermolysis [Unknown]
  - Disease progression [Unknown]
  - Compartment syndrome [Unknown]
